FAERS Safety Report 20298736 (Version 1)
Quarter: 2022Q1

REPORT INFORMATION
  Report Type: Spontaneous
  Country: US (occurrence: None)
  Receive Date: 20220104
  Receipt Date: 20220104
  Transmission Date: 20220424
  Serious: No
  Sender: FDA-Public Use
  Company Number: None

PATIENT
  Age: 28 Year
  Sex: Male

DRUGS (1)
  1. COSENTYX [Suspect]
     Active Substance: SECUKINUMAB
     Indication: Psoriatic arthropathy
     Dosage: INJECTE 150MG (1 SYRINGE) SUBCUTANEOUSLY ON DAY 28 (DOSE 5)  THEN EVERY 4 WEEKS AS DIRECTED
     Route: 058
     Dates: start: 202112

REACTIONS (1)
  - COVID-19 [None]
